FAERS Safety Report 4343105-6 (Version None)
Quarter: 2004Q2

REPORT INFORMATION
  Report Type: 
  Country: None (occurrence: None)
  Receive Date: 20040421
  Receipt Date: 20040301
  Transmission Date: 20050107
  Serious: Yes (Hospitalization)
  Sender: FDA-Public Use
  Company Number: US-GLAXOSMITHKLINE-A0502021A

PATIENT
  Age: 9 Year
  Sex: Female
  Weight: 27.3 kg

DRUGS (3)
  1. PAXIL [Suspect]
     Indication: OBSESSIVE-COMPULSIVE DISORDER
     Dosage: 20MG UNKNOWN
     Route: 048
     Dates: start: 20020101
  2. ZOLOFT [Suspect]
     Indication: OBSESSIVE-COMPULSIVE DISORDER
     Dosage: 50MG UNKNOWN
     Route: 048
     Dates: start: 20021001, end: 20021104
  3. ZYPREXA [Suspect]
     Dosage: 10MG UNKNOWN

REACTIONS (9)
  - ABNORMAL BEHAVIOUR [None]
  - AGGRESSION [None]
  - ANGER [None]
  - ARRHYTHMIA [None]
  - MYALGIA [None]
  - PAIN IN EXTREMITY [None]
  - SELF MUTILATION [None]
  - SUICIDAL IDEATION [None]
  - SUICIDE ATTEMPT [None]
